FAERS Safety Report 8117377-6 (Version None)
Quarter: 2012Q1

REPORT INFORMATION
  Report Type: 
  Country: None (occurrence: None)
  Receive Date: 20120206
  Receipt Date: 20120131
  Transmission Date: 20120608
  Serious: Yes (Death)
  Sender: FDA-Public Use
  Company Number: DE-ASTRAZENECA-2012SE06438

PATIENT
  Age: 40 Year
  Sex: Male

DRUGS (3)
  1. NORADRENALIN [Concomitant]
     Dosage: 1.33 UG/KG/MIN
  2. PROPOFOL [Suspect]
     Indication: SEDATIVE THERAPY
     Dosage: 424 MG/KG
     Route: 042
  3. REMIFENTANIL [Concomitant]

REACTIONS (11)
  - HYPERTENSIVE CRISIS [None]
  - INTRACRANIAL PRESSURE INCREASED [None]
  - ELECTROCARDIOGRAM ST-T SEGMENT ELEVATION [None]
  - PROPOFOL INFUSION SYNDROME [None]
  - ATRIOVENTRICULAR DISSOCIATION [None]
  - SHOCK [None]
  - HEPATIC CONGESTION [None]
  - MULTI-ORGAN FAILURE [None]
  - NODAL ARRHYTHMIA [None]
  - PULMONARY CONGESTION [None]
  - OPTIC ATROPHY [None]
